FAERS Safety Report 15907837 (Version 1)
Quarter: 2019Q1

REPORT INFORMATION
  Report Type: Spontaneous
  Country: CN (occurrence: CN)
  Receive Date: 20190204
  Receipt Date: 20190204
  Transmission Date: 20190417
  Serious: Yes (Other)
  Sender: FDA-Public Use
  Company Number: CN-PFIZER INC-2019038937

PATIENT
  Age: 48 Year
  Sex: Male
  Weight: 56 kg

DRUGS (2)
  1. CELECOXIB. [Suspect]
     Active Substance: CELECOXIB
     Indication: ANALGESIC THERAPY
     Dosage: 0.2 G, 2X/DAY
     Route: 048
     Dates: start: 20181121, end: 20181129
  2. DIOSMIN [Suspect]
     Active Substance: DIOSMIN
     Indication: BLOOD DISORDER
     Dosage: 0.9 G, 2X/DAY
     Route: 048
     Dates: start: 20181126, end: 20181129

REACTIONS (3)
  - Laryngeal oedema [Recovering/Resolving]
  - Face oedema [Recovering/Resolving]
  - Rash [Recovering/Resolving]

NARRATIVE: CASE EVENT DATE: 20181129
